FAERS Safety Report 5142854-X (Version None)
Quarter: 2006Q4

REPORT INFORMATION
  Report Type: 
  Country: None (occurrence: None)
  Receive Date: 20061030
  Receipt Date: 20061023
  Transmission Date: 20070319
  Serious: Yes (Hospitalization)
  Sender: FDA-Public Use
  Company Number: 002#1#2006-00307

PATIENT
  Age: 13 Year
  Sex: Female

DRUGS (2)
  1. GLYCOLAX [Suspect]
     Indication: CONSTIPATION
     Dosage: 17Q, 1 IN 1 D, ORAL
     Route: 048
     Dates: start: 20050101, end: 20060101
  2. ESOMEPRAZOLE MAGNESIUM [Concomitant]

REACTIONS (4)
  - ABDOMINAL PAIN [None]
  - LOCAL SWELLING [None]
  - RASH [None]
  - SWELLING FACE [None]
